FAERS Safety Report 14661454 (Version 1)
Quarter: 2018Q1

REPORT INFORMATION
  Report Type: Spontaneous
  Country: TW (occurrence: TW)
  Receive Date: 20180320
  Receipt Date: 20180320
  Transmission Date: 20180509
  Serious: Yes (Life-Threatening)
  Sender: FDA-Public Use
  Company Number: PHHY2018TW047824

PATIENT
  Age: 66 Year
  Sex: Male
  Weight: 59.8 kg

DRUGS (2)
  1. TEGRETOL [Suspect]
     Active Substance: CARBAMAZEPINE
     Indication: EPILEPSY
     Dosage: 200 MG, BID
     Route: 048
     Dates: start: 20170310, end: 20170314
  2. TEGRETOL [Suspect]
     Active Substance: CARBAMAZEPINE
     Indication: EPILEPSY
     Dosage: 200 MG, BID
     Route: 048
     Dates: start: 20170314, end: 20170321

REACTIONS (6)
  - Haemorrhage intracranial [Unknown]
  - Blister [Unknown]
  - Rash generalised [Unknown]
  - Stevens-Johnson syndrome [Unknown]
  - Inguinal hernia [Unknown]
  - Cognitive disorder [Unknown]
